FAERS Safety Report 15708619 (Version 1)
Quarter: 2018Q4

REPORT INFORMATION
  Report Type: Spontaneous
  Country: BR (occurrence: BR)
  Receive Date: 20181211
  Receipt Date: 20181211
  Transmission Date: 20190205
  Serious: Yes (Other)
  Sender: FDA-Public Use
  Company Number: BR-TORRENT-00004768

PATIENT
  Age: 57 Year
  Sex: Male
  Weight: 88 kg

DRUGS (4)
  1. LAMITOR CD [Suspect]
     Active Substance: LAMOTRIGINE
     Indication: EPILEPSY
     Dosage: ONE TABLET DAILY
     Route: 048
     Dates: start: 20181119
  2. GARDENAL 100 MG [Concomitant]
     Indication: EPILEPSY
     Dosage: ONE TABLET DAILY
     Route: 048
     Dates: start: 1998
  3. RIVOTRIL [Concomitant]
     Active Substance: CLONAZEPAM
     Indication: EPILEPSY
     Dosage: ONE TABLET DAILY
     Route: 048
     Dates: start: 1998
  4. TRILEPTAL 600 MG [Concomitant]
     Indication: EPILEPSY
     Dosage: ONE TABLET DAILY
     Route: 048
     Dates: start: 2002

REACTIONS (3)
  - Seizure [Unknown]
  - Product availability issue [Unknown]
  - Drug ineffective [Not Recovered/Not Resolved]

NARRATIVE: CASE EVENT DATE: 20181127
